FAERS Safety Report 9105949 (Version 1)
Quarter: 2013Q1

REPORT INFORMATION
  Report Type: Spontaneous
  Country: BR (occurrence: BR)
  Receive Date: 20130220
  Receipt Date: 20130220
  Transmission Date: 20140127
  Serious: Yes (Disabling)
  Sender: FDA-Public Use
  Company Number: BR-ELI_LILLY_AND_COMPANY-BR201302002551

PATIENT
  Sex: Female
  Weight: 54 kg

DRUGS (4)
  1. HUMALOG LISPRO [Suspect]
     Indication: TYPE 1 DIABETES MELLITUS
     Dosage: 5 IU, QD
     Route: 065
     Dates: start: 2010
  2. HUMALOG LISPRO [Suspect]
     Dosage: 3 IU, QD
     Route: 065
  3. CAPTOPRIL [Concomitant]
     Dosage: UNK, UNKNOWN
     Route: 065
     Dates: start: 2009
  4. INSULIN GLARGINE [Concomitant]
     Dosage: UNK, UNKNOWN
     Route: 065

REACTIONS (5)
  - Blindness [Unknown]
  - Hypoaesthesia oral [Unknown]
  - Chills [Unknown]
  - Increased appetite [Unknown]
  - Hypoglycaemia [Recovered/Resolved]
